FAERS Safety Report 14981966 (Version 2)
Quarter: 2018Q3

REPORT INFORMATION
  Report Type: Spontaneous
  Country: US (occurrence: US)
  Receive Date: 20180607
  Receipt Date: 20180709
  Transmission Date: 20181010
  Serious: Yes (Other)
  Sender: FDA-Public Use
  Company Number: US-CIPLA LTD.-2018US18916

PATIENT

DRUGS (1)
  1. SERTRALINE [Suspect]
     Active Substance: SERTRALINE HYDROCHLORIDE
     Indication: DEPRESSION
     Dosage: TWO 100 MG TABLETS DAILY
     Route: 048

REACTIONS (3)
  - Drug ineffective [Unknown]
  - Product label issue [Unknown]
  - Condition aggravated [Not Recovered/Not Resolved]
